FAERS Safety Report 8825315 (Version 1)
Quarter: 2012Q4

REPORT INFORMATION
  Report Type: 
  Country: US (occurrence: US)
  Receive Date: 20121004
  Receipt Date: 20121004
  Transmission Date: 20130627
  Serious: Yes (Other)
  Sender: FDA-Public Use
  Company Number: US-ROCHE-1134954

PATIENT
  Sex: Female

DRUGS (1)
  1. RITUXAN [Suspect]
     Indication: CHRONIC LYMPHOCYTIC LEUKAEMIA
     Route: 065

REACTIONS (6)
  - White blood cell count increased [Unknown]
  - Cholelithiasis [Unknown]
  - Nausea [Unknown]
  - Infusion related reaction [Unknown]
  - Anaemia [Unknown]
  - Thrombocytopenia [Unknown]
